FAERS Safety Report 22293499 (Version 1)
Quarter: 2023Q2

REPORT INFORMATION
  Report Type: Spontaneous
  Country: US (occurrence: None)
  Receive Date: 20230504
  Receipt Date: 20230504
  Transmission Date: 20230721
  Serious: Yes (Life-Threatening, Hospitalization)
  Sender: FDA-Public Use
  Company Number: None

PATIENT
  Age: 67 Year
  Sex: Male
  Weight: 124.9 kg

DRUGS (1)
  1. LUMASON [Suspect]
     Active Substance: SULFUR HEXAFLUORIDE
     Indication: Cardiac imaging procedure
     Dosage: FREQUENCY : ONCE;?OTHER ROUTE : INTRAVENOUS BOLUS;?
     Route: 050
     Dates: start: 20230502

REACTIONS (6)
  - Loss of consciousness [None]
  - Agonal respiration [None]
  - Flushing [None]
  - Blood pressure immeasurable [None]
  - Atrial fibrillation [None]
  - Cardiac procedure complication [None]

NARRATIVE: CASE EVENT DATE: 20230502
